FAERS Safety Report 25661806 (Version 1)
Quarter: 2025Q3

REPORT INFORMATION
  Report Type: Spontaneous
  Country: US (occurrence: US)
  Receive Date: 20250809
  Receipt Date: 20250809
  Transmission Date: 20251021
  Serious: No
  Sender: AMGEN
  Company Number: US-AMGEN-USASP2025155428

PATIENT
  Age: 68 Year
  Sex: Female
  Weight: 202 kg

DRUGS (8)
  1. TEPEZZA [Suspect]
     Active Substance: TEPROTUMUMAB-TRBW
     Indication: Toxic goitre
     Route: 040
     Dates: start: 20220809
  2. TEPEZZA [Suspect]
     Active Substance: TEPROTUMUMAB-TRBW
     Indication: Exophthalmos
     Route: 040
     Dates: start: 20220831
  3. TEPEZZA [Suspect]
     Active Substance: TEPROTUMUMAB-TRBW
     Indication: Eyelid retraction
     Route: 040
     Dates: start: 20220921
  4. TEPEZZA [Suspect]
     Active Substance: TEPROTUMUMAB-TRBW
     Indication: Diplopia
     Route: 040
     Dates: start: 20221019
  5. TEPEZZA [Suspect]
     Active Substance: TEPROTUMUMAB-TRBW
     Route: 040
     Dates: start: 20221109
  6. TEPEZZA [Suspect]
     Active Substance: TEPROTUMUMAB-TRBW
     Route: 040
     Dates: start: 20221130
  7. TEPEZZA [Suspect]
     Active Substance: TEPROTUMUMAB-TRBW
     Route: 040
     Dates: start: 20221221
  8. TEPEZZA [Suspect]
     Active Substance: TEPROTUMUMAB-TRBW
     Route: 040
     Dates: start: 20230111

REACTIONS (2)
  - Inappropriate schedule of product administration [Unknown]
  - Blood pressure abnormal [Unknown]

NARRATIVE: CASE EVENT DATE: 20220831
